FAERS Safety Report 6523340-9 (Version None)
Quarter: 2009Q4

REPORT INFORMATION
  Report Type: 
  Country: None (occurrence: None)
  Receive Date: 20091231
  Receipt Date: 20091224
  Transmission Date: 20100525
  Serious: Yes (Hospitalization)
  Sender: FDA-Public Use
  Company Number: JP-ROCHE-669127

PATIENT
  Sex: Male
  Weight: 68 kg

DRUGS (3)
  1. TAMIFLU [Suspect]
     Indication: INFLUENZA
     Route: 048
     Dates: start: 20091028, end: 20091028
  2. AMANTADINE HYDROCHLORIDE [Suspect]
     Indication: INFLUENZA
     Route: 048
  3. AMANTADINE HYDROCHLORIDE [Suspect]
     Dosage: DRUG NAME REPORTED AS SYMMETREL. DOSE FORM: ORAL FORMULATION (NOT OTHERWISE SPECIFIED)
     Route: 048
     Dates: start: 20091028, end: 20091102

REACTIONS (1)
  - JAUNDICE [None]
